FAERS Safety Report 6487300-9 (Version None)
Quarter: 2009Q4

REPORT INFORMATION
  Report Type: 
  Country: None (occurrence: None)
  Receive Date: 20091123
  Receipt Date: 20090723
  Transmission Date: 20100525
  Serious: No
  Sender: FDA-Public Use
  Company Number: 8049362

PATIENT
  Age: 63 Year
  Sex: Female
  Weight: 44.4 kg

DRUGS (6)
  1. CIMZIA [Suspect]
     Indication: CROHN'S DISEASE
     Dosage: 400 MG SC
     Route: 058
     Dates: start: 20090715
  2. PREDNISONE TAB [Concomitant]
  3. FORTEO [Concomitant]
  4. OMEPRAZOLE [Concomitant]
  5. MULTI-VITAMIN [Concomitant]
  6. CALCIUM [Concomitant]

REACTIONS (5)
  - BLOOD PRESSURE INCREASED [None]
  - DIZZINESS [None]
  - DYSURIA [None]
  - FATIGUE [None]
  - TACHYCARDIA [None]
